FAERS Safety Report 5094917-5 (Version None)
Quarter: 2006Q3

REPORT INFORMATION
  Report Type: 
  Country: None (occurrence: None)
  Receive Date: 20060901
  Receipt Date: 20060825
  Transmission Date: 20061208
  Serious: Yes (Hospitalization)
  Sender: FDA-Public Use
  Company Number: PHRM2006FR02394

PATIENT
  Age: 28 Year
  Sex: Male

DRUGS (6)
  1. LIORESAL [Suspect]
     Dosage: 1 DF, TID
     Route: 048
     Dates: start: 20060307
  2. FLAGYL [Suspect]
     Indication: MENINGITIS
     Dosage: 500 MG, TID
     Route: 048
     Dates: start: 20060307, end: 20060526
  3. RIVOTRIL [Suspect]
     Dosage: 5 DF, QD
     Route: 048
     Dates: start: 20060307
  4. TIENAM [Suspect]
     Indication: MENINGITIS
     Dosage: 500 MG, QID
     Route: 042
     Dates: start: 20060307, end: 20060403
  5. LOVENOX [Suspect]
     Dosage: 0.2 ML, QD
     Route: 058
     Dates: start: 20060307
  6. VANCOMYCIN [Suspect]
     Indication: MENINGITIS
     Dosage: 2 MG, QD
     Route: 042
     Dates: start: 20060307, end: 20060526

REACTIONS (8)
  - BLADDER DISORDER [None]
  - INTERVERTEBRAL DISCITIS [None]
  - LYMPHOCYTE COUNT DECREASED [None]
  - NEUTROPENIA [None]
  - NEUTROPHIL COUNT DECREASED [None]
  - OSTEOMYELITIS [None]
  - OSTEOSYNTHESIS [None]
  - WHITE BLOOD CELL COUNT DECREASED [None]
